FAERS Safety Report 10601959 (Version 2)
Quarter: 2014Q4

REPORT INFORMATION
  Report Type: Spontaneous
  Country: US (occurrence: US)
  Receive Date: 20141124
  Receipt Date: 20141201
  Transmission Date: 20150529
  Serious: No
  Sender: FDA-Public Use
  Company Number: US-PFIZER INC-2014322389

PATIENT
  Age: 66 Year
  Sex: Female
  Weight: 77 kg

DRUGS (2)
  1. AROMASIN [Suspect]
     Active Substance: EXEMESTANE
     Indication: BREAST CANCER
     Dosage: 25 MG, 1X/DAY
     Route: 048
     Dates: start: 201409, end: 20141103
  2. METOPROLOL [Concomitant]
     Active Substance: METOPROLOL
     Dosage: 12.5 MG, 1X/DAY
     Route: 048

REACTIONS (2)
  - Gait disturbance [Unknown]
  - Bone pain [Recovering/Resolving]

NARRATIVE: CASE EVENT DATE: 201410
